FAERS Safety Report 5877471-7 (Version None)
Quarter: 2008Q3

REPORT INFORMATION
  Report Type: 
  Country: None (occurrence: None)
  Receive Date: 20080911
  Receipt Date: 20080902
  Transmission Date: 20090109
  Serious: Yes (Other)
  Sender: FDA-Public Use
  Company Number: ES-RANBAXY-2008RR-17759

PATIENT

DRUGS (1)
  1. TOPIRAMATO RANBAXY 25MG COMPRIMIDOS EFG [Suspect]
     Indication: MIGRAINE PROPHYLAXIS
     Dosage: 50 MG, BID

REACTIONS (1)
  - RESTLESS LEGS SYNDROME [None]
